FAERS Safety Report 8942063 (Version 1)
Quarter: 2012Q4

REPORT INFORMATION
  Report Type: 
  Country: US (occurrence: US)
  Receive Date: 20121130
  Receipt Date: 20121130
  Transmission Date: 20130627
  Serious: Yes (Hospitalization)
  Sender: FDA-Public Use
  Company Number: US-GLAXOSMITHKLINE-A0815587A

PATIENT
  Age: 50 Year
  Sex: Male
  Weight: 154.5 kg

DRUGS (1)
  1. AVANDIA [Suspect]
     Indication: DIABETES MELLITUS
     Route: 048

REACTIONS (3)
  - Cardiac failure congestive [Not Recovered/Not Resolved]
  - Atrial fibrillation [Unknown]
  - Diabetes mellitus [Unknown]
